FAERS Safety Report 6011692-8 (Version None)
Quarter: 2008Q4

REPORT INFORMATION
  Report Type: 
  Country: None (occurrence: None)
  Receive Date: 20081218
  Receipt Date: 19860825
  Transmission Date: 20090506
  Serious: Yes (Death)
  Sender: FDA-Public Use
  Company Number: ZA-ROCHE-860150197001

PATIENT
  Age: 67 Year
  Sex: Male

DRUGS (2)
  1. INTERFERON ALFA-2A [Suspect]
     Dosage: SCHEDULE: DAILY, UNITS: MU.
     Route: 058
     Dates: start: 19850410
  2. INTERFERON ALFA-2A [Suspect]
     Dosage: UNITS: MU
     Route: 058
     Dates: start: 19850410

REACTIONS (2)
  - CHRONIC LYMPHOCYTIC LEUKAEMIA [None]
  - GASTROINTESTINAL HAEMORRHAGE [None]
